FAERS Safety Report 9184161 (Version 2)
Quarter: 2013Q2

REPORT INFORMATION
  Report Type: Spontaneous
  Country: US (occurrence: US)
  Receive Date: 20130322
  Receipt Date: 20130624
  Transmission Date: 20140414
  Serious: Yes (Hospitalization, Other)
  Sender: FDA-Public Use
  Company Number: US-BAYER-2013-034529

PATIENT
  Age: 37 Year
  Sex: Female

DRUGS (6)
  1. YAZ [Suspect]
     Dosage: UNK
     Dates: start: 200807, end: 201007
  2. AUGMENTIN [Concomitant]
     Dosage: UNK
     Dates: start: 20100616
  3. ALEVE [Concomitant]
  4. AZITHROMYCIN [Concomitant]
     Dosage: UNK
     Dates: start: 20100604
  5. ALBUTEROL [Concomitant]
     Dosage: UNK
     Dates: start: 20100604
  6. TYLENOL #3 [Concomitant]
     Dosage: UNK
     Dates: start: 20100616

REACTIONS (10)
  - Pulmonary embolism [None]
  - Septic embolus [None]
  - Deep vein thrombosis [Recovered/Resolved]
  - Injury [None]
  - Pain [None]
  - General physical health deterioration [None]
  - Emotional distress [None]
  - Anxiety [None]
  - Anhedonia [None]
  - Pain [None]
